FAERS Safety Report 12280875 (Version 3)
Quarter: 2016Q4

REPORT INFORMATION
  Report Type: Report from Study
  Country: JP (occurrence: JP)
  Receive Date: 20160419
  Receipt Date: 20161229
  Transmission Date: 20170207
  Serious: Yes (Hospitalization, Other)
  Sender: FDA-Public Use
  Company Number: JP-ASTELLAS-2016JP004431

PATIENT
  Age: 58 Year
  Sex: Female

DRUGS (46)
  1. PREDONINE [Suspect]
     Active Substance: PREDNISOLONE\PREDNISOLONE ACETATE\PREDNISOLONE SODIUM SUCCINATE
     Route: 048
     Dates: start: 20150804, end: 20150817
  2. PREDONINE [Suspect]
     Active Substance: PREDNISOLONE\PREDNISOLONE ACETATE\PREDNISOLONE SODIUM SUCCINATE
     Route: 048
     Dates: start: 20151215, end: 20160216
  3. PREDONINE [Suspect]
     Active Substance: PREDNISOLONE\PREDNISOLONE ACETATE\PREDNISOLONE SODIUM SUCCINATE
     Route: 048
     Dates: start: 20160412, end: 20160607
  4. LIVALO [Concomitant]
     Active Substance: PITAVASTATIN CALCIUM
     Indication: PRODUCT USED FOR UNKNOWN INDICATION
     Route: 048
     Dates: start: 20150721
  5. CODEINE PHOSPHATE [Concomitant]
     Active Substance: CODEINE PHOSPHATE
     Indication: INTERSTITIAL LUNG DISEASE
     Route: 048
     Dates: start: 20150721
  6. AZUNOL                             /00317302/ [Concomitant]
     Indication: PRODUCT USED FOR UNKNOWN INDICATION
     Dosage: 12-24 MG, ONCE DAILY
     Route: 061
     Dates: start: 20151119
  7. MEROPEN                            /01250501/ [Concomitant]
     Active Substance: MEROPENEM
     Indication: UPPER RESPIRATORY TRACT INFECTION
     Route: 065
     Dates: start: 20160209, end: 20160215
  8. HIRUDOID                           /00723701/ [Concomitant]
     Active Substance: PENTOSAN POLYSULFATE SODIUM
     Indication: PROPHYLAXIS
     Dosage: APPROPRIATE DOSE
     Route: 061
     Dates: start: 20160324
  9. INAVIR                             /07146202/ [Concomitant]
     Indication: INFLUENZA
     Route: 055
     Dates: start: 20160315, end: 20160315
  10. TACROLIMUS. [Suspect]
     Active Substance: TACROLIMUS
     Indication: DERMATOMYOSITIS
     Route: 048
     Dates: start: 20160315, end: 20160318
  11. TACROLIMUS. [Suspect]
     Active Substance: TACROLIMUS
     Route: 048
     Dates: start: 20160608
  12. PREDONINE [Suspect]
     Active Substance: PREDNISOLONE\PREDNISOLONE ACETATE\PREDNISOLONE SODIUM SUCCINATE
     Indication: PRODUCT USED FOR UNKNOWN INDICATION
     Route: 048
     Dates: start: 20150721, end: 20150803
  13. PREDONINE [Suspect]
     Active Substance: PREDNISOLONE\PREDNISOLONE ACETATE\PREDNISOLONE SODIUM SUCCINATE
     Route: 048
     Dates: start: 20150922, end: 20151005
  14. HUMALOG [Concomitant]
     Active Substance: INSULIN LISPRO
     Indication: PROPHYLAXIS
  15. BAKUMONDOTO [Concomitant]
     Active Substance: HERBALS
     Indication: PRODUCT USED FOR UNKNOWN INDICATION
     Route: 048
     Dates: start: 20160323
  16. LEVOFLOXACIN HEMIHYDRATE [Concomitant]
     Active Substance: LEVOFLOXACIN
     Indication: UPPER RESPIRATORY TRACT INFECTION
     Route: 048
     Dates: start: 20160315, end: 20160315
  17. TACROLIMUS. [Suspect]
     Active Substance: TACROLIMUS
     Route: 048
     Dates: start: 20160325, end: 20160328
  18. PREDONINE [Suspect]
     Active Substance: PREDNISOLONE\PREDNISOLONE ACETATE\PREDNISOLONE SODIUM SUCCINATE
     Route: 048
     Dates: start: 20150825, end: 20150907
  19. CARBOCISTEINE [Concomitant]
     Active Substance: CARBOCYSTEINE
     Indication: INTERSTITIAL LUNG DISEASE
     Route: 048
     Dates: start: 20150721
  20. BONALON [Concomitant]
     Active Substance: ALENDRONATE SODIUM
     Indication: PROPHYLAXIS
     Route: 048
     Dates: start: 20150728
  21. SALIVEHT [Concomitant]
     Indication: PRODUCT USED FOR UNKNOWN INDICATION
     Dosage: 4-5 ML, ONCE DAILY
     Route: 049
     Dates: start: 20151028, end: 20151118
  22. HIRUDOID                           /00723701/ [Concomitant]
     Active Substance: PENTOSAN POLYSULFATE SODIUM
     Indication: ASTEATOSIS
     Dosage: APPROPRIATE DOSE
     Route: 061
     Dates: start: 20160223, end: 20160323
  23. VENETLIN [Concomitant]
     Active Substance: ALBUTEROL SULFATE
     Indication: UPPER RESPIRATORY TRACT INFECTION
     Dosage: 0.9 ML, ONCE DAILY
     Route: 055
     Dates: start: 20160209, end: 20160216
  24. TACROLIMUS. [Suspect]
     Active Substance: TACROLIMUS
     Dosage: 0.5 MG, TWICE DAILY
     Route: 048
     Dates: start: 20160322, end: 20160324
  25. TACROLIMUS. [Suspect]
     Active Substance: TACROLIMUS
     Route: 048
     Dates: start: 20160329, end: 20160406
  26. PREDONINE [Suspect]
     Active Substance: PREDNISOLONE\PREDNISOLONE ACETATE\PREDNISOLONE SODIUM SUCCINATE
     Route: 048
     Dates: start: 20151118, end: 20151214
  27. PREDONINE [Suspect]
     Active Substance: PREDNISOLONE\PREDNISOLONE ACETATE\PREDNISOLONE SODIUM SUCCINATE
     Route: 048
     Dates: start: 20160217, end: 20160411
  28. HUMALOG [Concomitant]
     Active Substance: INSULIN LISPRO
     Indication: DIABETES MELLITUS
     Dosage: ACCORDING TO THE SCALE
     Route: 065
     Dates: start: 20150721
  29. ZOSYN [Concomitant]
     Active Substance: PIPERACILLIN SODIUM\TAZOBACTAM SODIUM
     Indication: UPPER RESPIRATORY TRACT INFECTION
     Route: 065
     Dates: start: 20160720, end: 20160725
  30. TACROLIMUS. [Suspect]
     Active Substance: TACROLIMUS
     Indication: INTERSTITIAL LUNG DISEASE
     Route: 048
     Dates: start: 20150721, end: 20160304
  31. HYALEIN [Concomitant]
     Active Substance: HYALURONATE SODIUM
     Indication: PRODUCT USED FOR UNKNOWN INDICATION
     Dosage: LEFT/RIGHT, 6 TIMES
     Route: 047
     Dates: end: 20150926
  32. PREDONINE [Suspect]
     Active Substance: PREDNISOLONE\PREDNISOLONE ACETATE\PREDNISOLONE SODIUM SUCCINATE
     Route: 048
     Dates: start: 20150908, end: 20150921
  33. PREDONINE [Suspect]
     Active Substance: PREDNISOLONE\PREDNISOLONE ACETATE\PREDNISOLONE SODIUM SUCCINATE
     Route: 048
     Dates: start: 20151006, end: 20151117
  34. PREDONINE [Suspect]
     Active Substance: PREDNISOLONE\PREDNISOLONE ACETATE\PREDNISOLONE SODIUM SUCCINATE
     Route: 048
     Dates: start: 20160608
  35. FEBURIC [Concomitant]
     Active Substance: FEBUXOSTAT
     Indication: PRODUCT USED FOR UNKNOWN INDICATION
     Route: 048
     Dates: start: 20150721
  36. SEIBULE [Concomitant]
     Active Substance: MIGLITOL
     Indication: DIABETES MELLITUS
     Route: 048
     Dates: start: 20150730, end: 20150731
  37. MS ONSHIPPU [Concomitant]
     Active Substance: CAMPHOR\CAPSICUM\METHYL SALICYLATE
     Indication: DERMATOMYOSITIS
     Dosage: WHEN PAIN IS PRESENT 20 G/DAY, AS NEEDED
     Route: 061
     Dates: start: 20151028, end: 20160113
  38. MEROPEN                            /01250501/ [Concomitant]
     Active Substance: MEROPENEM
     Route: 065
     Dates: start: 20160318, end: 20160323
  39. TACROLIMUS. [Suspect]
     Active Substance: TACROLIMUS
     Route: 048
     Dates: start: 20160407, end: 20160607
  40. CRAVIT [Concomitant]
     Active Substance: LEVOFLOXACIN
     Indication: UPPER RESPIRATORY TRACT INFECTION
     Route: 048
     Dates: start: 20160316, end: 20160318
  41. VENETLIN [Concomitant]
     Active Substance: ALBUTEROL SULFATE
     Dosage: 0.9 ML, ONCE DAILY
     Route: 055
     Dates: start: 20160723, end: 20160728
  42. PREDONINE [Suspect]
     Active Substance: PREDNISOLONE\PREDNISOLONE ACETATE\PREDNISOLONE SODIUM SUCCINATE
     Route: 048
     Dates: start: 20150818, end: 20150824
  43. NEXIUM [Concomitant]
     Active Substance: ESOMEPRAZOLE MAGNESIUM
     Indication: PROPHYLAXIS
     Route: 048
     Dates: start: 20150721
  44. BAKTAR [Concomitant]
     Active Substance: SULFAMETHOXAZOLE\TRIMETHOPRIM
     Indication: PROPHYLAXIS
     Route: 048
     Dates: start: 20150728
  45. PROMAC                             /00024401/ [Concomitant]
     Active Substance: NITROFURANTOIN
     Indication: DYSGEUSIA
     Route: 048
     Dates: start: 20160112
  46. SYMBICORT [Concomitant]
     Active Substance: BUDESONIDE\FORMOTEROL FUMARATE DIHYDRATE
     Indication: ASTHMA
     Dosage: 2-4, INHALATION
     Route: 055
     Dates: start: 20160216

REACTIONS (15)
  - Asthma [Recovering/Resolving]
  - Upper respiratory tract infection [Recovering/Resolving]
  - Upper respiratory tract infection [Recovering/Resolving]
  - Renal impairment [Recovering/Resolving]
  - Hypertension [Recovering/Resolving]
  - Vomiting [Recovered/Resolved]
  - Renal impairment [Recovering/Resolving]
  - Deep vein thrombosis [Not Recovered/Not Resolved]
  - Decreased appetite [Recovered/Resolved]
  - Dysgeusia [Recovering/Resolving]
  - Influenza [Recovering/Resolving]
  - Renal impairment [Recovered/Resolved]
  - Diabetes mellitus [Not Recovered/Not Resolved]
  - Asteatosis [Recovering/Resolving]
  - Asthma-chronic obstructive pulmonary disease overlap syndrome [Recovering/Resolving]

NARRATIVE: CASE EVENT DATE: 20150729
